FAERS Safety Report 5497041-2 (Version None)
Quarter: 2007Q4

REPORT INFORMATION
  Report Type: 
  Country: None (occurrence: None)
  Receive Date: 20071018
  Receipt Date: 20070102
  Transmission Date: 20080405
  Serious: Yes (Other)
  Sender: FDA-Public Use
  Company Number: 2005107414

PATIENT
  Age: 52 Year
  Sex: Male

DRUGS (1)
  1. NEURONTIN [Suspect]
     Indication: NEURALGIA
     Dosage: 900 MG (300 MG, 3 IN 1 D)
     Dates: start: 20020920

REACTIONS (5)
  - DEPRESSION [None]
  - DRUG INEFFECTIVE [None]
  - HOSTILITY [None]
  - SUICIDAL BEHAVIOUR [None]
  - SUICIDAL IDEATION [None]
